FAERS Safety Report 8119954-5 (Version None)
Quarter: 2012Q1

REPORT INFORMATION
  Report Type: 
  Country: None (occurrence: None)
  Receive Date: 20120206
  Receipt Date: 20120206
  Transmission Date: 20120608
  Serious: Yes (Hospitalization)
  Sender: FDA-Public Use
  Company Number: None

PATIENT
  Age: 31 Year
  Sex: Female
  Weight: 76.6579 kg

DRUGS (2)
  1. BACTRIM [Suspect]
     Indication: INFECTION
     Dosage: 800/160 MG TWICE A DAY BY MOUTH
     Route: 048
     Dates: start: 20120106, end: 20120115
  2. BACTRIM [Suspect]
     Indication: FURUNCLE
     Dosage: 800/160 MG TWICE A DAY BY MOUTH
     Route: 048
     Dates: start: 20120106, end: 20120115

REACTIONS (8)
  - FATIGUE [None]
  - CONFUSIONAL STATE [None]
  - SKIN DISCOLOURATION [None]
  - FEELING ABNORMAL [None]
  - DYSARTHRIA [None]
  - DIZZINESS [None]
  - MEMORY IMPAIRMENT [None]
  - BLOOD PRESSURE INCREASED [None]
